FAERS Safety Report 25529674 (Version 3)
Quarter: 2025Q3

REPORT INFORMATION
  Report Type: Report from Study
  Country: US (occurrence: US)
  Receive Date: 20250708
  Receipt Date: 20250801
  Transmission Date: 20251020
  Serious: Yes (Life-Threatening, Other)
  Sender: BIOMARIN
  Company Number: US-BIOMARINAP-US-2025-167064

PATIENT
  Age: 7 Year
  Sex: Male
  Weight: 18.9 kg

DRUGS (18)
  1. BRINEURA [Suspect]
     Active Substance: CERLIPONASE ALFA
     Indication: Neuronal ceroid lipofuscinosis
     Dosage: 300 MILLIGRAM, QOW
     Dates: start: 20250325
  2. DIPHENHYDRAMINE [Concomitant]
     Active Substance: DIPHENHYDRAMINE
     Indication: Premedication
  3. LIDOCAINE [Concomitant]
     Active Substance: LIDOCAINE
     Indication: Premedication
  4. IBUPROFEN [Concomitant]
     Active Substance: IBUPROFEN
     Indication: Pyrexia
  5. SALINE [Concomitant]
     Active Substance: SODIUM CHLORIDE
     Indication: Bronchitis chronic
  6. ALBUTEROL [Concomitant]
     Active Substance: ALBUTEROL
     Indication: Bronchitis chronic
  7. ALBUTEROL [Concomitant]
     Active Substance: ALBUTEROL
  8. BACLOFEN [Concomitant]
     Active Substance: BACLOFEN
     Indication: Muscle spasms
  9. CLONAZEPAM [Concomitant]
     Active Substance: CLONAZEPAM
     Indication: Seizure
  10. SODIUM CHLORIDE [Concomitant]
     Active Substance: SODIUM CHLORIDE
     Indication: Bronchitis chronic
  11. ACETAMINOPHEN [Concomitant]
     Active Substance: ACETAMINOPHEN
     Indication: Premedication
  12. BUDESONIDE [Concomitant]
     Active Substance: BUDESONIDE
     Indication: Bronchitis chronic
  13. SENNA [Concomitant]
     Active Substance: SENNOSIDES
     Indication: Constipation
  14. VALPROIC ACID [Concomitant]
     Active Substance: VALPROIC ACID
     Indication: Seizure
  15. CLOBAZAM [Concomitant]
     Active Substance: CLOBAZAM
     Indication: Seizure
  16. DIAZEPAM [Concomitant]
     Active Substance: DIAZEPAM
     Indication: Seizure
  17. GABAPENTIN [Concomitant]
     Active Substance: GABAPENTIN
     Indication: Seizure
  18. LEVETIRACETAM [Concomitant]
     Active Substance: LEVETIRACETAM
     Indication: Seizure

REACTIONS (1)
  - Cerebrospinal fluid leakage [Recovered/Resolved]

NARRATIVE: CASE EVENT DATE: 20250430
